FAERS Safety Report 19442875 (Version 2)
Quarter: 2021Q3

REPORT INFORMATION
  Report Type: Spontaneous
  Country: GB (occurrence: GB)
  Receive Date: 20210621
  Receipt Date: 20210803
  Transmission Date: 20211014
  Serious: Yes (Death, Other)
  Sender: FDA-Public Use
  Company Number: GB-PERRIGO-19GB012060

PATIENT
  Age: 16 Year
  Sex: Male

DRUGS (4)
  1. PARACETAMOL [Suspect]
     Active Substance: ACETAMINOPHEN
     Indication: PRODUCT USED FOR UNKNOWN INDICATION
     Dosage: 2 TABLETS
     Route: 065
  2. ISOTRETINOIN. [Suspect]
     Active Substance: ISOTRETINOIN
     Indication: PRODUCT USED FOR UNKNOWN INDICATION
  3. ROACCUTANE [Suspect]
     Active Substance: ISOTRETINOIN
     Indication: ACNE
     Dosage: 80 MG, QD
     Route: 048
     Dates: start: 201005
  4. CHLORPHENAMINE [Suspect]
     Active Substance: CHLORPHENIRAMINE MALEATE
     Indication: PRODUCT USED FOR UNKNOWN INDICATION
     Dosage: 21 UNK
     Route: 065

REACTIONS (17)
  - Completed suicide [Fatal]
  - Pain in extremity [Unknown]
  - Ingrowing nail [Unknown]
  - Lip dry [Unknown]
  - Suicide attempt [Recovered/Resolved]
  - Psychiatric symptom [Unknown]
  - Gastric infection [Unknown]
  - Erythema [Unknown]
  - Dry skin [Unknown]
  - Overdose [Unknown]
  - Personality change [Unknown]
  - Suicidal ideation [Unknown]
  - Oropharyngeal pain [Unknown]
  - Aggression [Unknown]
  - Localised infection [Unknown]
  - Scar [Unknown]
  - Depression [Unknown]

NARRATIVE: CASE EVENT DATE: 20100928
